FAERS Safety Report 22932882 (Version 2)
Quarter: 2025Q3

REPORT INFORMATION
  Report Type: Spontaneous
  Country: EU (occurrence: EU)
  Receive Date: 20230912
  Receipt Date: 20250911
  Transmission Date: 20251020
  Serious: Yes (Hospitalization)
  Sender: JOHNSON AND JOHNSON
  Company Number: None

PATIENT
  Age: 55 Year
  Sex: Male

DRUGS (1)
  1. CONCERTA [Suspect]
     Active Substance: METHYLPHENIDATE HYDROCHLORIDE
     Indication: Attention deficit hyperactivity disorder
     Route: 048
     Dates: start: 2015, end: 202302

REACTIONS (3)
  - Cardiac valve disease [Recovering/Resolving]
  - Heart valve incompetence [Recovering/Resolving]
  - Mitral valve repair [Recovering/Resolving]

NARRATIVE: CASE EVENT DATE: 20230203
